FAERS Safety Report 9593770 (Version 1)
Quarter: 2013Q3

REPORT INFORMATION
  Report Type: Spontaneous
  Country: US (occurrence: None)
  Receive Date: 20130930
  Receipt Date: 20130930
  Transmission Date: 20140515
  Serious: No
  Sender: FDA-Public Use
  Company Number: 1000045661

PATIENT
  Age: 82 None
  Sex: Female

DRUGS (6)
  1. LINZESS [Suspect]
     Indication: CONSTIPATION
     Dosage: 145 MCG (145 MCG, 1 IN 1 D), ORAL
     Route: 048
     Dates: start: 2013, end: 2013
  2. LINZESS [Suspect]
     Indication: CONSTIPATION
     Dosage: 145 MCG (145 MCG, 1 IN 1 D), ORAL
     Route: 048
     Dates: start: 20130530
  3. PRILOSEC (OMEPRAZOLE) (OMEPRAZOLE) [Concomitant]
  4. LORAZEPAM (LORAZEPAM) (LORAZEPAM) [Concomitant]
  5. VITAMIN D (VITAMIN D) (VITAMIN D) [Concomitant]
  6. ASPIRIN (ACETYLSLICYLIC ACID) (ACETYLSALICYLIC ACID) [Concomitant]

REACTIONS (5)
  - Abdominal distension [None]
  - Diarrhoea [None]
  - Nausea [None]
  - Abdominal pain [None]
  - Flatulence [None]
